FAERS Safety Report 10195036 (Version 1)
Quarter: 2014Q2

REPORT INFORMATION
  Report Type: Report from Study
  Country: BR (occurrence: BR)
  Receive Date: 20140526
  Receipt Date: 20140526
  Transmission Date: 20141212
  Serious: Yes (Death, Hospitalization, Other)
  Sender: FDA-Public Use
  Company Number: PHHY2014BR061949

PATIENT
  Age: 81 Year
  Sex: Female
  Weight: 72 kg

DRUGS (4)
  1. DIOVAN HCT [Suspect]
     Indication: HYPERTENSION
     Dosage: 1 DF, QD (VALS 80 MG, HCTZ 12.5 MG)
     Route: 048
     Dates: end: 20140413
  2. CORDAREX [Concomitant]
     Indication: HYPERTENSION
     Dosage: 1 DF, A DAY (5 MG)
     Route: 048
     Dates: start: 1999, end: 20140413
  3. ASPIRINA PREVENT [Concomitant]
     Indication: COAGULOPATHY
     Dosage: 1 DF, A DAY (100 MG)
     Route: 048
     Dates: end: 20140413
  4. SYNTHROID [Concomitant]
     Indication: HORMONE REPLACEMENT THERAPY
     Dosage: 1 DF, A DAY (50 UG)
     Route: 048
     Dates: start: 1999, end: 20140413

REACTIONS (7)
  - Subarachnoid haemorrhage [Fatal]
  - Pneumonia [Fatal]
  - Septic shock [Fatal]
  - Cerebrovascular accident [Unknown]
  - Depressed level of consciousness [Unknown]
  - Vomiting [Unknown]
  - Cardiac arrest [Unknown]
